FAERS Safety Report 7834911-1 (Version None)
Quarter: 2011Q4

REPORT INFORMATION
  Report Type: 
  Country: None (occurrence: None)
  Receive Date: 20111024
  Receipt Date: 20111013
  Transmission Date: 20120403
  Serious: Yes (Hospitalization)
  Sender: FDA-Public Use
  Company Number: CA-JNJFOC-20111006743

PATIENT
  Sex: Female
  Weight: 65.9 kg

DRUGS (5)
  1. IMURAN [Concomitant]
  2. ASACOL [Concomitant]
  3. REMICADE [Suspect]
     Indication: COLITIS ULCERATIVE
     Route: 042
     Dates: start: 20110621
  4. FOLIC ACID [Concomitant]
  5. BIOTIN [Concomitant]

REACTIONS (3)
  - VOMITING [None]
  - COLITIS ULCERATIVE [None]
  - HEADACHE [None]
